FAERS Safety Report 21208040 (Version 2)
Quarter: 2022Q3

REPORT INFORMATION
  Report Type: Spontaneous
  Country: CN (occurrence: CN)
  Receive Date: 20220812
  Receipt Date: 20220822
  Transmission Date: 20221026
  Serious: Yes (Other)
  Sender: FDA-Public Use
  Company Number: CN-BAYER-2022A111557

PATIENT
  Age: 63 Year
  Sex: Female

DRUGS (3)
  1. MOXIFLOXACIN [Suspect]
     Active Substance: MOXIFLOXACIN
     Indication: Tuberculosis
     Dosage: 0.4 G, QD
     Route: 048
     Dates: start: 20210511, end: 20210602
  2. ISONIAZID [Concomitant]
     Active Substance: ISONIAZID
     Dosage: 0.1 G, QD
     Route: 048
     Dates: start: 202101
  3. RIFAPENTINE [Concomitant]
     Active Substance: RIFAPENTINE
     Dosage: 0.15 G, BIW
     Dates: start: 202101

REACTIONS (5)
  - Iridocyclitis [Recovered/Resolved]
  - Dysgeusia [None]
  - Poor quality sleep [None]
  - Faeces hard [None]
  - Off label use [None]

NARRATIVE: CASE EVENT DATE: 20210511
